FAERS Safety Report 8477281-0 (Version None)
Quarter: 2012Q2

REPORT INFORMATION
  Report Type: 
  Country: None (occurrence: None)
  Receive Date: 20120629
  Receipt Date: 20120619
  Transmission Date: 20120825
  Serious: Yes (Other)
  Sender: FDA-Public Use
  Company Number: CA-JNJFOC-20120609826

PATIENT
  Sex: Female
  Weight: 84 kg

DRUGS (3)
  1. VITAMIN [Concomitant]
     Route: 065
  2. REMICADE [Suspect]
     Indication: CROHN'S DISEASE
     Route: 042
     Dates: start: 20100401
  3. MELATONIN [Concomitant]
     Route: 065

REACTIONS (3)
  - NEURALGIA [None]
  - TEMPOROMANDIBULAR JOINT SYNDROME [None]
  - FALL [None]
